FAERS Safety Report 6440003-9 (Version None)
Quarter: 2009Q4

REPORT INFORMATION
  Report Type: 
  Country: None (occurrence: None)
  Receive Date: 20091110
  Receipt Date: 20091106
  Transmission Date: 20100525
  Serious: Yes (Death)
  Sender: FDA-Public Use
  Company Number: 1000008707

PATIENT
  Age: 48 Year
  Sex: Female
  Weight: 96.6162 kg

DRUGS (4)
  1. LEXAPRO [Suspect]
     Dosage: MORE THAN 1O (ONCE); 20 MG (20 MG, 1 IN 1 D), ORAL
     Route: 048
     Dates: start: 20050828, end: 20081001
  2. LEXAPRO [Suspect]
     Dosage: MORE THAN 1O (ONCE); 20 MG (20 MG, 1 IN 1 D), ORAL
     Route: 048
     Dates: start: 20081001, end: 20081001
  3. OXYCONTIN [Suspect]
     Dosage: (800 MG, ONCE); 160 MG (80 MD, 2 IN 1 D), ORAL
     Route: 048
     Dates: start: 20080416, end: 20081001
  4. OXYCONTIN [Suspect]
     Dosage: (800 MG, ONCE); 160 MG (80 MD, 2 IN 1 D), ORAL
     Route: 048
     Dates: start: 20081001, end: 20081001

REACTIONS (2)
  - COMPLETED SUICIDE [None]
  - MULTIPLE DRUG OVERDOSE INTENTIONAL [None]
